FAERS Safety Report 10792801 (Version 1)
Quarter: 2015Q1

REPORT INFORMATION
  Report Type: Report from Study
  Country: US (occurrence: None)
  Receive Date: 20150211
  Receipt Date: 20150211
  Transmission Date: 20150721
  Serious: Yes (Hospitalization)
  Sender: FDA-Public Use
  Company Number: 1224850-2015-00005

PATIENT
  Age: 65 Year
  Sex: Female
  Weight: 97.5 kg

DRUGS (14)
  1. LEVOTHYROXINE [Concomitant]
     Active Substance: LEVOTHYROXINE
  2. TRAMADOL [Concomitant]
     Active Substance: TRAMADOL
  3. CELECOXIB. [Concomitant]
     Active Substance: CELECOXIB
  4. PLACEBO BLINDED [Concomitant]
  5. AMLODIPINE [Concomitant]
     Active Substance: AMLODIPINE BESYLATE
  6. CALCIFEROL VIT D (ERGOCALCIFEROL) [Concomitant]
  7. CALCIUM CARBONATE. [Concomitant]
     Active Substance: CALCIUM CARBONATE
  8. PLACEBO BLINDED [Concomitant]
  9. LISINOPRIL. [Concomitant]
     Active Substance: LISINOPRIL
  10. CALCIUM ACETATE. [Suspect]
     Active Substance: CALCIUM ACETATE
     Indication: HYPOCALCAEMIA
     Route: 048
     Dates: start: 20130701
  11. NAPROXEN. [Concomitant]
     Active Substance: NAPROXEN
  12. TUMS [Concomitant]
     Active Substance: CALCIUM CARBONATE
  13. IBUPROFEN. [Concomitant]
     Active Substance: IBUPROFEN
  14. NEXIUM [Concomitant]
     Active Substance: ESOMEPRAZOLE MAGNESIUM

REACTIONS (2)
  - Hypercalcaemia [None]
  - Hypocalcaemia [None]

NARRATIVE: CASE EVENT DATE: 20140904
